FAERS Safety Report 5520200-7 (Version None)
Quarter: 2007Q4

REPORT INFORMATION
  Report Type: 
  Country: None (occurrence: None)
  Receive Date: 20071116
  Receipt Date: 20071107
  Transmission Date: 20080405
  Serious: Yes (Other)
  Sender: FDA-Public Use
  Company Number: GR-ABBOTT-07P-066-0423735-00

PATIENT
  Age: 29 Year
  Sex: Male
  Weight: 67 kg

DRUGS (5)
  1. AKINETON [Suspect]
     Indication: EXTRAPYRAMIDAL DISORDER
     Route: 048
     Dates: start: 20070830, end: 20070831
  2. CLOMETHIAZOLE EDISILATE [Suspect]
     Indication: ALCOHOLISM
     Route: 048
     Dates: start: 20070830, end: 20070831
  3. BUPRENORPHINE HYDROCHLORIDE [Concomitant]
     Indication: DRUG USE FOR UNKNOWN INDICATION
  4. OXCARBAZEPINE [Concomitant]
     Indication: DRUG USE FOR UNKNOWN INDICATION
     Route: 048
  5. MIRTAZAPINE [Concomitant]
     Indication: DRUG USE FOR UNKNOWN INDICATION
     Route: 048

REACTIONS (4)
  - CONFUSIONAL STATE [None]
  - DYSARTHRIA [None]
  - NYSTAGMUS [None]
  - SOMNOLENCE [None]
